FAERS Safety Report 16866646 (Version 2)
Quarter: 2019Q4

REPORT INFORMATION
  Report Type: Spontaneous
  Country: US (occurrence: US)
  Receive Date: 20190930
  Receipt Date: 20191018
  Transmission Date: 20200122
  Serious: Yes (Hospitalization)
  Sender: FDA-Public Use
  Company Number: US-AMGEN-USASP2019158812

PATIENT
  Age: 66 Year
  Sex: Male
  Weight: 113.83 kg

DRUGS (2)
  1. ENBREL [Suspect]
     Active Substance: ETANERCEPT
     Dosage: 50 MILLIGRAM
     Route: 058
     Dates: start: 201908, end: 201909
  2. ENBREL [Suspect]
     Active Substance: ETANERCEPT
     Indication: RHEUMATOID ARTHRITIS
     Dosage: 50 MILLIGRAM
     Route: 058
     Dates: start: 2015, end: 2018

REACTIONS (3)
  - Hypertension [Unknown]
  - Renal cyst [Unknown]
  - Renal mass [Unknown]

NARRATIVE: CASE EVENT DATE: 2018
